FAERS Safety Report 9738411 (Version 1)
Quarter: 2013Q4

REPORT INFORMATION
  Report Type: Report from Study
  Country: CA (occurrence: CA)
  Receive Date: 20131208
  Receipt Date: 20131208
  Transmission Date: 20140711
  Serious: Yes (Death, Hospitalization)
  Sender: FDA-Public Use
  Company Number: CA-ROCHE-1315277

PATIENT
  Age: 80 Year
  Sex: Female

DRUGS (11)
  1. XELODA [Suspect]
     Indication: GASTROINTESTINAL CARCINOMA
     Route: 048
     Dates: start: 20130801, end: 20130808
  2. SYNTHROID [Concomitant]
  3. GLYBURIDE [Concomitant]
  4. AMLODIPINE [Concomitant]
  5. CITALOPRAM [Concomitant]
  6. LORAZEPAM [Concomitant]
  7. INDAPAMIDE [Concomitant]
  8. ACETAMINOPHEN [Concomitant]
  9. SOFLAX (CANADA) [Concomitant]
  10. METOCLOPRAMIDE [Concomitant]
  11. ATORVASTATIN [Concomitant]

REACTIONS (2)
  - Oral pain [Fatal]
  - Rash [Fatal]
